FAERS Safety Report 7532224-9 (Version None)
Quarter: 2011Q2

REPORT INFORMATION
  Report Type: 
  Country: None (occurrence: None)
  Receive Date: 20110608
  Receipt Date: 20110603
  Transmission Date: 20111010
  Serious: Yes (Hospitalization, Other)
  Sender: FDA-Public Use
  Company Number: CA-PFIZER INC-2011122214

PATIENT
  Age: 25 Year
  Sex: Female

DRUGS (2)
  1. CLOZAPINE [Suspect]
     Indication: SCHIZOPHRENIA
     Dosage: UNK
     Dates: start: 20101130, end: 20110601
  2. EFFEXOR XR [Suspect]
     Dosage: UNK

REACTIONS (1)
  - POISONING [None]
